FAERS Safety Report 7386872-X (Version None)
Quarter: 2011Q1

REPORT INFORMATION
  Report Type: 
  Country: None (occurrence: None)
  Receive Date: 20110331
  Receipt Date: 20110328
  Transmission Date: 20110831
  Serious: No
  Sender: FDA-Public Use
  Company Number: US-PFIZER INC-2011068660

PATIENT
  Age: 55 Year
  Sex: Female

DRUGS (1)
  1. VISTARIL [Suspect]

REACTIONS (5)
  - HYPERSENSITIVITY [None]
  - SWELLING FACE [None]
  - ARRHYTHMIA [None]
  - RASH [None]
  - OEDEMA PERIPHERAL [None]
